FAERS Safety Report 9944295 (Version 1)
Quarter: 2014Q1

REPORT INFORMATION
  Report Type: Report from Study
  Country: US (occurrence: US)
  Receive Date: 20140303
  Receipt Date: 20140303
  Transmission Date: 20141002
  Serious: No
  Sender: FDA-Public Use
  Company Number: US-ABBVIE-13P-163-1048547-00

PATIENT
  Age: 81 Year
  Sex: Female

DRUGS (4)
  1. HUMIRA [Suspect]
     Indication: COLITIS ULCERATIVE
     Dates: start: 20121110
  2. LIALDA [Concomitant]
     Indication: COLITIS ULCERATIVE
     Dosage: 2 TABLETS IN THE AM, 2 TABLETS IN THE PM
  3. FLORASTOR [Concomitant]
     Indication: PRODUCT USED FOR UNKNOWN INDICATION
     Dosage: 1 TABLET IN THE AM
  4. DIOVAN [Concomitant]
     Indication: HYPERTENSION

REACTIONS (1)
  - Alopecia [Not Recovered/Not Resolved]
